FAERS Safety Report 4996839-4 (Version None)
Quarter: 2006Q2

REPORT INFORMATION
  Report Type: 
  Country: None (occurrence: None)
  Receive Date: 20060509
  Receipt Date: 20060330
  Transmission Date: 20061013
  Serious: Yes (Hospitalization, Disabling, Other)
  Sender: FDA-Public Use
  Company Number: US-MERCK-0604USA00113

PATIENT
  Age: 50 Year
  Sex: Male
  Weight: 126 kg

DRUGS (1)
  1. VIOXX [Suspect]
     Indication: ARTHRITIS
     Route: 048
     Dates: start: 20000527, end: 20040816

REACTIONS (13)
  - ANGINA PECTORIS [None]
  - ARTERIOSCLEROSIS [None]
  - ARTHROPATHY [None]
  - BRONCHITIS [None]
  - CARDIAC DISORDER [None]
  - CORONARY ARTERY DISEASE [None]
  - DEPRESSED MOOD [None]
  - DYSPNOEA [None]
  - ERECTILE DYSFUNCTION [None]
  - FATIGUE [None]
  - MYOCARDIAL INFARCTION [None]
  - NECK INJURY [None]
  - ROAD TRAFFIC ACCIDENT [None]
